FAERS Safety Report 13360342 (Version 2)
Quarter: 2017Q1

REPORT INFORMATION
  Report Type: Spontaneous
  Country: JP (occurrence: JP)
  Receive Date: 20170322
  Receipt Date: 20170329
  Transmission Date: 20170429
  Serious: Yes (Death, Other)
  Sender: FDA-Public Use
  Company Number: PHJP2017JP003878

PATIENT
  Age: 74 Year
  Sex: Female

DRUGS (2)
  1. PREDNISOLON [Suspect]
     Active Substance: PREDNISOLONE
     Indication: LUPUS NEPHRITIS
     Dosage: 20MG (0.8MG/KG), UNK
     Route: 048
  2. CICLOSPORIN [Suspect]
     Active Substance: CYCLOSPORINE
     Indication: LUPUS NEPHRITIS
     Dosage: 100 MG, UNK
     Route: 048

REACTIONS (4)
  - Product use issue [Unknown]
  - Death [Fatal]
  - Nocardiosis [Recovering/Resolving]
  - Pneumonia [Recovering/Resolving]
